FAERS Safety Report 6767513-9 (Version None)
Quarter: 2010Q2

REPORT INFORMATION
  Report Type: 
  Country: None (occurrence: None)
  Receive Date: 20100614
  Receipt Date: 20100602
  Transmission Date: 20101027
  Serious: Yes (Other)
  Sender: FDA-Public Use
  Company Number: PHHY2010TW36397

PATIENT
  Age: 58 Year
  Sex: Female

DRUGS (1)
  1. ACLASTA [Suspect]
     Dosage: UNK

REACTIONS (3)
  - ANGINA PECTORIS [None]
  - BONE PAIN [None]
  - PYREXIA [None]
